FAERS Safety Report 5874503-7 (Version None)
Quarter: 2008Q3

REPORT INFORMATION
  Report Type: 
  Country: None (occurrence: None)
  Receive Date: 20080909
  Receipt Date: 20080828
  Transmission Date: 20090109
  Serious: Yes (Other)
  Sender: FDA-Public Use
  Company Number: PHHY2008FR16729

PATIENT
  Sex: Male
  Weight: 74 kg

DRUGS (11)
  1. ZOMETA [Suspect]
     Indication: PROSTATE CANCER
     Dosage: 4 MG, QMO
     Route: 042
     Dates: start: 20060310
  2. TERALITHE [Concomitant]
     Dosage: 400 MG, UNK
  3. IXPRIM [Concomitant]
     Dosage: 1 DF, QD
  4. PANTOPRAZOLE SODIUM [Concomitant]
     Dosage: UNK
  5. DOXAZOSIN [Concomitant]
     Dosage: UNK
  6. COAPROVEL [Concomitant]
     Dosage: UNK
  7. METFORMIN [Concomitant]
     Dosage: 850 MG, TID
  8. DIAMICRON [Concomitant]
     Dosage: 30 MG, BID
  9. PRAVADUAL [Concomitant]
  10. LYRICA [Concomitant]
     Dosage: 100 MG, UNK
  11. DECAPEPTYL - SLOW RELEASE [Suspect]

REACTIONS (3)
  - RETINAL HAEMORRHAGE [None]
  - VISUAL ACUITY REDUCED [None]
  - VISUAL FIELD DEFECT [None]
